FAERS Safety Report 23292396 (Version 1)
Quarter: 2023Q4

REPORT INFORMATION
  Report Type: Spontaneous
  Country: None (occurrence: US)
  Receive Date: 20231213
  Receipt Date: 20231213
  Transmission Date: 20240109
  Serious: No
  Sender: FDA-Public Use
  Company Number: US-Harrow Eye-2149271

PATIENT
  Sex: Female

DRUGS (7)
  1. LINEZOLID [Suspect]
     Active Substance: LINEZOLID
     Indication: Mycobacterium abscessus infection
  2. MOXIFLOXACIN [Suspect]
     Active Substance: MOXIFLOXACIN
  3. TIGECYCLINE [Suspect]
     Active Substance: TIGECYCLINE
  4. DOXYCYCLINE [Suspect]
     Active Substance: DOXYCYCLINE
  5. CEFOXITIN [Suspect]
     Active Substance: CEFOXITIN SODIUM
  6. IMIPENEM [Suspect]
     Active Substance: IMIPENEM
  7. AMIKACIN [Suspect]
     Active Substance: AMIKACIN

REACTIONS (1)
  - Bacterial infection [Unknown]
